FAERS Safety Report 10207266 (Version 1)
Quarter: 2014Q2

REPORT INFORMATION
  Report Type: Spontaneous
  Country: US (occurrence: US)
  Receive Date: 20140530
  Receipt Date: 20140530
  Transmission Date: 20141212
  Serious: No
  Sender: FDA-Public Use
  Company Number: US-GLAXOSMITHKLINE-A1027836A

PATIENT
  Age: 71 Year
  Sex: Female

DRUGS (13)
  1. VENTOLIN [Suspect]
     Indication: ASTHMA
     Dosage: 2PUFF AS REQUIRED
     Route: 055
     Dates: start: 201305
  2. ADVAIR [Concomitant]
  3. SPIRIVA [Concomitant]
  4. METFORMIN [Concomitant]
  5. SPIRONOLACTONE [Concomitant]
  6. POTASSIUM CHLORIDE [Concomitant]
  7. FUROSEMIDE [Concomitant]
  8. WARFARIN [Concomitant]
  9. PRAVASTATIN [Concomitant]
  10. QUINAPRIL [Concomitant]
  11. GLIMEPIRIDE [Concomitant]
  12. PLAVIX [Concomitant]
  13. BABY ASPIRIN [Concomitant]

REACTIONS (2)
  - Tongue disorder [Recovered/Resolved]
  - Paraesthesia oral [Unknown]
